FAERS Safety Report 8964984 (Version 2)
Quarter: 2012Q4

REPORT INFORMATION
  Report Type: 
  Country: US (occurrence: US)
  Receive Date: 20121214
  Receipt Date: 20121220
  Transmission Date: 20130627
  Serious: Yes (Life-Threatening)
  Sender: FDA-Public Use
  Company Number: US-ROCHE-1167771

PATIENT
  Age: 51 Year
  Sex: Female
  Weight: 53.57 kg

DRUGS (7)
  1. AVASTIN [Suspect]
     Indication: COLON CANCER
     Route: 042
     Dates: start: 20121016, end: 20121030
  2. 5-FLUOROURACIL [Concomitant]
     Indication: COLON CANCER
     Route: 042
     Dates: start: 20121016
  3. LEVOLEUCOVORIN [Concomitant]
     Indication: COLON CANCER
     Route: 042
     Dates: start: 20121016
  4. OXALIPLATIN [Concomitant]
     Indication: COLON CANCER
     Route: 042
     Dates: start: 20121016
  5. EMEND [Concomitant]
     Indication: NAUSEA
     Route: 042
     Dates: start: 20121016
  6. ZOFRAN [Concomitant]
     Indication: NAUSEA
     Route: 042
     Dates: start: 20121016
  7. DECADRON [Concomitant]
     Indication: NAUSEA
     Route: 065
     Dates: start: 20121016

REACTIONS (2)
  - Posterior reversible encephalopathy syndrome [Recovered/Resolved]
  - Convulsion [Recovered/Resolved]
